FAERS Safety Report 6159737-9 (Version None)
Quarter: 2009Q2

REPORT INFORMATION
  Report Type: 
  Country: None (occurrence: None)
  Receive Date: 20090415
  Receipt Date: 20090330
  Transmission Date: 20091009
  Serious: Yes (Hospitalization)
  Sender: FDA-Public Use
  Company Number: 000511

PATIENT
  Age: 58 Year
  Sex: Male

DRUGS (7)
  1. LACOSAMIDE [Suspect]
     Indication: EPILEPSY
     Dosage: TABLET, 200 MG, BID; ORAL
     Route: 048
     Dates: start: 20030609
  2. LAMICTAL [Concomitant]
  3. OXCARBAZEPINE [Concomitant]
  4. RAMIPRIL [Concomitant]
  5. BETALOC ZOK (METOPROLOL SUCCINATE) [Concomitant]
  6. ACETAMINOPHEN [Concomitant]
  7. NEURONTIN [Concomitant]

REACTIONS (2)
  - ARRHYTHMIA [None]
  - CARDIAC FIBRILLATION [None]
